FAERS Safety Report 13987466 (Version 1)
Quarter: 2017Q3

REPORT INFORMATION
  Report Type: Spontaneous
  Country: US (occurrence: US)
  Receive Date: 20170919
  Receipt Date: 20170919
  Transmission Date: 20171128
  Serious: Yes (Hospitalization, Other)
  Sender: FDA-Public Use
  Company Number: US-PFIZER INC-2017397601

PATIENT
  Age: 55 Year
  Sex: Female

DRUGS (17)
  1. PROTONIX [Concomitant]
     Active Substance: PANTOPRAZOLE SODIUM
     Dosage: 40 MG, UNK
  2. PROGRAF [Interacting]
     Active Substance: TACROLIMUS\TACROLIMUS ANHYDROUS
     Indication: IMMUNOSUPPRESSION
     Dosage: 0.5 MG, 2X/DAY
     Route: 048
     Dates: start: 201009
  3. PROGRAF [Interacting]
     Active Substance: TACROLIMUS\TACROLIMUS ANHYDROUS
     Dosage: 1 MG, 2X/DAY (2 CAPSULES AT 9 AM AND 2 CAPSULES AT 9 PM)
     Route: 048
  4. ZOFRAN [Interacting]
     Active Substance: ONDANSETRON HYDROCHLORIDE
     Indication: ABDOMINAL DISCOMFORT
     Dosage: 4 MG, AS NEEDED
  5. OXYCODONE [Concomitant]
     Active Substance: OXYCODONE
     Dosage: 5 MG, UNK
  6. ALPRAZOLAM. [Concomitant]
     Active Substance: ALPRAZOLAM
     Dosage: 1 MG, UNK
  7. TACROLIMUS. [Interacting]
     Active Substance: TACROLIMUS
     Indication: IMMUNOSUPPRESSION
     Dosage: UNK
     Dates: start: 201708, end: 201708
  8. NADOLOL. [Concomitant]
     Active Substance: NADOLOL
     Dosage: 40 MG, UNK
  9. PRAVASTATIN. [Concomitant]
     Active Substance: PRAVASTATIN
     Dosage: 20 MG, UNK
  10. MAGNESIUM OXIDE. [Concomitant]
     Active Substance: MAGNESIUM OXIDE
     Dosage: 400 MG, UNK
  11. FLUCONAZOLE. [Suspect]
     Active Substance: FLUCONAZOLE
     Indication: FUNGAL INFECTION
     Dosage: UNK
  12. ASA [Concomitant]
     Active Substance: ASPIRIN
     Dosage: 81 MG, UNK
  13. LACTULOSE. [Concomitant]
     Active Substance: LACTULOSE
     Dosage: 15 ML, UNK
  14. PROGRAF [Interacting]
     Active Substance: TACROLIMUS\TACROLIMUS ANHYDROUS
     Dosage: 1 MG, 2X/DAY (2 CAPSULES AT 9 AM AND 2 CAPSULES AT 9 PM)
     Route: 048
  15. PHENERGAN [Interacting]
     Active Substance: PROMETHAZINE HYDROCHLORIDE
     Dosage: UNK
  16. COMPAZINE [Interacting]
     Active Substance: PROCHLORPERAZINE MALEATE
     Dosage: UNK
  17. XIFAXAN [Concomitant]
     Active Substance: RIFAXIMIN
     Dosage: 550 MG, UNK

REACTIONS (31)
  - Fungal infection [Recovered/Resolved]
  - Respiratory arrest [Unknown]
  - Tardive dyskinesia [Unknown]
  - Decubitus ulcer [Unknown]
  - Skin disorder [Recovering/Resolving]
  - Ulcer [Unknown]
  - Asthenia [Unknown]
  - Pneumonia aspiration [Unknown]
  - Cough [Unknown]
  - Fluid overload [Recovered/Resolved]
  - Blood creatinine increased [Recovered/Resolved]
  - Renal failure [Unknown]
  - Hypersensitivity [Unknown]
  - Confusional state [Unknown]
  - Drug interaction [Unknown]
  - Blood sodium decreased [Recovered/Resolved]
  - Pneumothorax [Unknown]
  - Immunosuppressant drug level decreased [Unknown]
  - Abdominal discomfort [Unknown]
  - Electrocardiogram QT prolonged [Recovered/Resolved]
  - Hepatic failure [Unknown]
  - Hypertension [Unknown]
  - Blood sodium decreased [Unknown]
  - Dry mouth [Unknown]
  - Hypopnoea [Unknown]
  - Blood potassium decreased [Recovered/Resolved]
  - Blood magnesium decreased [Recovered/Resolved]
  - Myocardial infarction [Recovered/Resolved]
  - Haematocrit decreased [Unknown]
  - Haemoglobin decreased [Unknown]
  - Dysphonia [Unknown]

NARRATIVE: CASE EVENT DATE: 20131127
